FAERS Safety Report 4366869-4 (Version None)
Quarter: 2004Q2

REPORT INFORMATION
  Report Type: 
  Country: None (occurrence: None)
  Receive Date: 20040524
  Receipt Date: 20040512
  Transmission Date: 20050107
  Serious: No
  Sender: FDA-Public Use
  Company Number: 04P-163-0260687-00

PATIENT
  Age: 30 Year
  Sex: Female
  Weight: 66.6788 kg

DRUGS (5)
  1. HUMIRA [Suspect]
     Indication: RHEUMATOID ARTHRITIS
     Dosage: 40 MG, 1 IN 2 WK, SUBCUTANEOUS
     Route: 058
     Dates: start: 20040223
  2. METHOTREXATE [Concomitant]
  3. NORETHINDRONE ACETATE AND ETHINYL ESTRADIOL [Concomitant]
  4. ESOMEPRAZOLE [Concomitant]
  5. LANSOPRAZOLE [Concomitant]

REACTIONS (4)
  - DEPRESSION [None]
  - JOINT SWELLING [None]
  - OEDEMA PERIPHERAL [None]
  - TENDON RUPTURE [None]
